FAERS Safety Report 5171608-3 (Version None)
Quarter: 2006Q4

REPORT INFORMATION
  Report Type: 
  Country: None (occurrence: None)
  Receive Date: 20061205
  Receipt Date: 20061116
  Transmission Date: 20070319
  Serious: Yes (Other)
  Sender: FDA-Public Use
  Company Number: 2006142063

PATIENT
  Age: 33 Year
  Sex: Female

DRUGS (1)
  1. ZYRTEC [Suspect]
     Indication: HYPERSENSITIVITY
     Dosage: 10 MG (10 MG, 1 IN 1 D)
     Dates: start: 20000101

REACTIONS (5)
  - ASTHMA [None]
  - DRUG HYPERSENSITIVITY [None]
  - LACRIMATION INCREASED [None]
  - PHARMACEUTICAL PRODUCT COMPLAINT [None]
  - PRURITUS [None]
